FAERS Safety Report 20797620 (Version 1)
Quarter: 2022Q2

REPORT INFORMATION
  Report Type: Other
  Country: IL (occurrence: None)
  Receive Date: 20220506
  Receipt Date: 20220506
  Transmission Date: 20220721
  Serious: Yes (Other)
  Sender: FDA-Public Use
  Company Number: IL-Merck Healthcare KGaA-9317240

PATIENT
  Age: 28 Year
  Sex: Female

DRUGS (1)
  1. METFORMIN [Suspect]
     Active Substance: METFORMIN HYDROCHLORIDE
     Indication: Type 2 diabetes mellitus

REACTIONS (4)
  - Diabetic ketoacidosis [Unknown]
  - Complication of pregnancy [Recovered/Resolved]
  - Live birth [Recovered/Resolved]
  - Maternal exposure during pregnancy [Recovered/Resolved]
